FAERS Safety Report 8123159-1 (Version None)
Quarter: 2012Q1

REPORT INFORMATION
  Report Type: 
  Country: None (occurrence: None)
  Receive Date: 20120208
  Receipt Date: 20120203
  Transmission Date: 20120608
  Serious: Yes (Hospitalization)
  Sender: FDA-Public Use
  Company Number: ES-ROXANE LABORATORIES, INC.-2012-RO-00600RO

PATIENT
  Age: 41 Year
  Sex: Male

DRUGS (4)
  1. METHOTREXATE [Suspect]
     Indication: SPONDYLITIS
     Route: 058
  2. PREDNISONE [Suspect]
     Indication: SPONDYLITIS
     Dosage: 15 MG
  3. METHOTREXATE [Suspect]
     Route: 058
  4. NAPROXEN [Suspect]
     Indication: SPONDYLITIS
     Dosage: 1000 MG

REACTIONS (5)
  - CYTOLYTIC HEPATITIS [None]
  - COAGULOPATHY [None]
  - RENAL FAILURE [None]
  - HEPATITIS B [None]
  - CHOLESTASIS [None]
